FAERS Safety Report 4754154-8 (Version None)
Quarter: 2005Q3

REPORT INFORMATION
  Report Type: 
  Country: None (occurrence: None)
  Receive Date: 20050826
  Receipt Date: 20000922
  Transmission Date: 20060218
  Serious: Yes (Hospitalization, Other)
  Sender: FDA-Public Use
  Company Number: JP-ABBOTT-05P-087-0306549-00

PATIENT
  Age: 14 Year
  Sex: Female

DRUGS (7)
  1. ERYTHROCIN [Suspect]
     Indication: ANTIBIOTIC PROPHYLAXIS
     Route: 048
     Dates: start: 20000914, end: 20000914
  2. TRANEXAMIC ACID [Suspect]
     Indication: ANTIINFLAMMATORY THERAPY
     Route: 048
     Dates: start: 20000914, end: 20000914
  3. EXTRACT FROM INFLAMMATORY RABBIT SKIN INOCULATED BY VACCINIA VIRUS [Suspect]
     Indication: ANTIINFLAMMATORY THERAPY
     Route: 042
     Dates: start: 20000914, end: 20000914
  4. FOSFOMYCIN [Suspect]
     Indication: ANTIBIOTIC PROPHYLAXIS
     Route: 042
     Dates: start: 20000914, end: 20000914
  5. PIROMIDIC ACID [Concomitant]
     Indication: DRUG USE FOR UNKNOWN INDICATION
     Route: 048
     Dates: start: 20000914, end: 20000914
  6. SERRAPEPTASE [Concomitant]
     Indication: ANTIINFLAMMATORY THERAPY
     Route: 048
     Dates: start: 20000914, end: 20000914
  7. DICLOFENAC SODIUM [Concomitant]
     Indication: PYREXIA
     Route: 048
     Dates: start: 20000914, end: 20000914

REACTIONS (3)
  - ANAPHYLACTIC SHOCK [None]
  - CHEST PAIN [None]
  - URTICARIA [None]
